FAERS Safety Report 14510962 (Version 1)
Quarter: 2018Q1

REPORT INFORMATION
  Report Type: Spontaneous
  Country: FR (occurrence: FR)
  Receive Date: 20180209
  Receipt Date: 20180209
  Transmission Date: 20180509
  Serious: Yes (Hospitalization)
  Sender: FDA-Public Use
  Company Number: FR-TEVA-2018-FR-855193

PATIENT
  Age: 27 Year
  Sex: Female

DRUGS (3)
  1. IMOVANE [Suspect]
     Active Substance: ZOPICLONE
     Route: 065
  2. STILNOX 10 MG, COMPRIM? PELLICUL? S?CABLE [Suspect]
     Active Substance: ZOLPIDEM TARTRATE
     Route: 048
  3. VENLAFAXINE [Suspect]
     Active Substance: VENLAFAXINE HYDROCHLORIDE
     Route: 065

REACTIONS (2)
  - Drug dependence [Not Recovered/Not Resolved]
  - Toxicity to various agents [Recovering/Resolving]
